FAERS Safety Report 17451380 (Version 5)
Quarter: 2022Q2

REPORT INFORMATION
  Report Type: Spontaneous
  Country: US (occurrence: US)
  Receive Date: 20200224
  Receipt Date: 20220518
  Transmission Date: 20220720
  Serious: No
  Sender: FDA-Public Use
  Company Number: US-PFIZER INC-2020079105

PATIENT
  Age: 58 Year
  Sex: Female

DRUGS (1)
  1. PREGABALIN [Suspect]
     Active Substance: PREGABALIN
     Dosage: 3 DF (3 PILLS)

REACTIONS (5)
  - Drug ineffective [Unknown]
  - Pain [Unknown]
  - Memory impairment [Unknown]
  - Product dose omission issue [Unknown]
  - Intentional product use issue [Unknown]
